FAERS Safety Report 9287010 (Version 1)
Quarter: 2013Q2

REPORT INFORMATION
  Report Type: Spontaneous
  Country: US (occurrence: None)
  Receive Date: 20130508
  Receipt Date: 20130508
  Transmission Date: 20140414
  Serious: Yes (Other)
  Sender: FDA-Public Use
  Company Number: UCM201304-000025

PATIENT
  Age: 36 Year
  Sex: Female
  Weight: 53.1 kg

DRUGS (3)
  1. DIVALPROEX SODIUM [Suspect]
     Indication: CONVULSION
     Route: 048
  2. PHENYTOIN [Suspect]
     Indication: CONVULSION
  3. PHENOBARBITAL SODIUM [Suspect]
     Indication: CONVULSION

REACTIONS (5)
  - Drug reaction with eosinophilia and systemic symptoms [None]
  - Staphylococcal infection [None]
  - Aspartate aminotransferase increased [None]
  - Alanine aminotransferase increased [None]
  - Liver injury [None]
